FAERS Safety Report 7119329-1 (Version None)
Quarter: 2010Q4

REPORT INFORMATION
  Report Type: 
  Country: None (occurrence: None)
  Receive Date: 20101123
  Receipt Date: 20101116
  Transmission Date: 20110411
  Serious: Yes (Death, Other)
  Sender: FDA-Public Use
  Company Number: US-BAYER-201047477GPV

PATIENT
  Age: 0 Hour

DRUGS (14)
  1. PROPOFOL [Suspect]
     Indication: SEDATION
     Route: 064
  2. DACARBAZINE [Suspect]
     Indication: NON-HODGKIN'S LYMPHOMA
     Dosage: ON DAYS 20, 34, 54, 68, AND 80
     Route: 064
  3. FENTANYL [Suspect]
     Indication: ANALGESIC THERAPY
     Route: 064
  4. ENOXAPARIN SODIUM [Suspect]
     Indication: ANTICOAGULANT THERAPY
     Route: 064
  5. VINCRISTINE [Suspect]
     Indication: NON-HODGKIN'S LYMPHOMA
     Route: 064
  6. DOXORUBICIN HCL [Suspect]
     Indication: NON-HODGKIN'S LYMPHOMA
     Route: 064
  7. DOXORUBICIN HCL [Suspect]
     Dosage: ON DAYS 20, 34, 54, 68, AND 80
     Route: 064
  8. CYCLOPHOSPHAMIDE [Suspect]
     Indication: NON-HODGKIN'S LYMPHOMA
     Route: 064
  9. VINBLASTINE SULFATE [Suspect]
     Indication: NON-HODGKIN'S LYMPHOMA
     Dosage: ON DAYS 20, 34, 54, 68, AND 80
     Route: 064
  10. PIPERACILLIN AND TAZOBACTAM [Suspect]
     Indication: PNEUMONIA
     Route: 064
  11. LINEZOLID [Suspect]
     Indication: PNEUMONIA
     Route: 064
  12. MEROPENEM [Suspect]
     Indication: PNEUMONIA
     Route: 064
  13. LIPOSOMAL AMPHOTERICIN B [Suspect]
     Indication: FUNGAEMIA
     Route: 064
  14. MIDAZOLAM [Suspect]
     Indication: SEDATION
     Route: 064

REACTIONS (2)
  - FOETAL DISORDER [None]
  - FOETAL GROWTH RESTRICTION [None]
